FAERS Safety Report 25259023 (Version 5)
Quarter: 2025Q2

REPORT INFORMATION
  Report Type: Spontaneous
  Country: US (occurrence: US)
  Receive Date: 20250501
  Receipt Date: 20250617
  Transmission Date: 20250716
  Serious: No
  Sender: PFIZER
  Company Number: US-PFIZER INC-202500087891

PATIENT
  Age: 14 Year
  Sex: Male

DRUGS (3)
  1. GENOTROPIN [Suspect]
     Active Substance: SOMATROPIN
     Dosage: 1.4MG ALTERNATE 1.6MG
  2. GENOTROPIN [Suspect]
     Active Substance: SOMATROPIN
     Dosage: 1.4MG ALTERNATE 1.6MG
  3. GENOTROPIN [Suspect]
     Active Substance: SOMATROPIN
     Dosage: 2.0 ONE TIME PER DAY

REACTIONS (1)
  - Device mechanical issue [Not Recovered/Not Resolved]
